FAERS Safety Report 8778484 (Version 2)
Quarter: 2012Q4

REPORT INFORMATION
  Report Type: 
  Country: US (occurrence: US)
  Receive Date: 20120911
  Receipt Date: 20120927
  Transmission Date: 20130627
  Serious: Yes (Hospitalization)
  Sender: FDA-Public Use
  Company Number: US-BIOGENIDEC-2012BI035574

PATIENT
  Age: 46 Year
  Sex: Male

DRUGS (4)
  1. TYSABRI [Suspect]
     Indication: MULTIPLE SCLEROSIS
     Route: 042
     Dates: start: 20120216
  2. AMITRYPTILINE [Concomitant]
     Indication: INSOMNIA
  3. GABAPENTIN [Concomitant]
     Indication: INTERVERTEBRAL DISC DEGENERATION
  4. BLOOD PRESSURE MEDICATION (NOS) [Concomitant]
     Indication: HYPERTENSION
     Dates: end: 201207

REACTIONS (5)
  - Chest pain [Recovered/Resolved]
  - Fatigue [Recovered/Resolved]
  - Hypertension [Recovered/Resolved]
  - Sleep apnoea syndrome [Not Recovered/Not Resolved]
  - Blood pressure fluctuation [Recovered/Resolved]
